FAERS Safety Report 9342454 (Version 3)
Quarter: 2013Q3

REPORT INFORMATION
  Report Type: Spontaneous
  Country: JP (occurrence: JP)
  Receive Date: 20130611
  Receipt Date: 20130805
  Transmission Date: 20140515
  Serious: Yes (Hospitalization)
  Sender: FDA-Public Use
  Company Number: PHHY2013JP058712

PATIENT
  Age: 76 Year
  Sex: Male

DRUGS (1)
  1. RITALIN [Suspect]
     Indication: NARCOLEPSY
     Dosage: 20 MG, DAILY TAKEN AFTER BREAKFAST
     Route: 048

REACTIONS (1)
  - Peripheral arterial occlusive disease [Unknown]
